FAERS Safety Report 7477937-2 (Version None)
Quarter: 2011Q2

REPORT INFORMATION
  Report Type: 
  Country: None (occurrence: None)
  Receive Date: 20110513
  Receipt Date: 20110505
  Transmission Date: 20111010
  Serious: Yes (Hospitalization)
  Sender: FDA-Public Use
  Company Number: US-SHIRE-SPV1-2011-00746

PATIENT
  Age: 85 Year
  Sex: Female
  Weight: 65.76 kg

DRUGS (1)
  1. LIALDA [Suspect]
     Indication: COLITIS ULCERATIVE
     Dosage: UNK
     Route: 048
     Dates: start: 20100401

REACTIONS (2)
  - ANAEMIA [None]
  - DIVERTICULITIS INTESTINAL HAEMORRHAGIC [None]
